FAERS Safety Report 8094270-9 (Version None)
Quarter: 2011Q4

REPORT INFORMATION
  Report Type: 
  Country: None (occurrence: None)
  Receive Date: 20111222
  Receipt Date: 20110908
  Transmission Date: 20120403
  Serious: Yes (Hospitalization)
  Sender: FDA-Public Use
  Company Number: UTC-009428

PATIENT
  Age: 78 Year
  Sex: Male
  Weight: 102.2 kg

DRUGS (5)
  1. COUMADIN [Concomitant]
  2. TYVASO [Suspect]
     Indication: PULMONARY ARTERIAL HYPERTENSION
     Dosage: 18 - 54 MICROGRAMS (4 IN 1 D), INHALATION
     Route: 055
     Dates: start: 20110727
  3. DIURETICS (DIURETICS) [Concomitant]
  4. TRACLEER [Concomitant]
  5. REVATIO [Concomitant]

REACTIONS (1)
  - RIGHT VENTRICULAR FAILURE [None]
